FAERS Safety Report 14954609 (Version 5)
Quarter: 2018Q4

REPORT INFORMATION
  Report Type: Spontaneous
  Country: US (occurrence: US)
  Receive Date: 20180530
  Receipt Date: 20181108
  Transmission Date: 20190204
  Serious: Yes (Hospitalization)
  Sender: FDA-Public Use
  Company Number: US-VIFOR (INTERNATIONAL) INC.-VIT-2018-04476

PATIENT
  Sex: Male

DRUGS (15)
  1. GLIPIZIDE. [Concomitant]
     Active Substance: GLIPIZIDE
  2. ISOSORBIDE MONONITRATE. [Concomitant]
     Active Substance: ISOSORBIDE MONONITRATE
  3. METFORMIN HCL [Concomitant]
     Active Substance: METFORMIN HYDROCHLORIDE
  4. VELTASSA [Suspect]
     Active Substance: PATIROMER
     Indication: HYPERKALAEMIA
     Route: 048
     Dates: start: 20180629
  5. VELTASSA [Suspect]
     Active Substance: PATIROMER
  6. HYDROCHLOROTHIAZIDE. [Concomitant]
     Active Substance: HYDROCHLOROTHIAZIDE
  7. STRESS B COMPLEX [Concomitant]
  8. VITAMIN D3 [Concomitant]
     Active Substance: CHOLECALCIFEROL
  9. JANUVIA [Concomitant]
     Active Substance: SITAGLIPTIN PHOSPHATE
  10. GABAPENTIN. [Concomitant]
     Active Substance: GABAPENTIN
  11. SIMVASTATIN. [Concomitant]
     Active Substance: SIMVASTATIN
  12. VITAMIN B12 [Concomitant]
     Active Substance: CYANOCOBALAMIN
  13. ASPIRIN. [Concomitant]
     Active Substance: ASPIRIN
  14. BRILINTA [Concomitant]
     Active Substance: TICAGRELOR
  15. CILOSTAZOL. [Concomitant]
     Active Substance: CILOSTAZOL

REACTIONS (4)
  - Blood potassium decreased [Unknown]
  - Stent placement [Unknown]
  - Urinary tract infection [Unknown]
  - Malaise [Unknown]

NARRATIVE: CASE EVENT DATE: 2018
